FAERS Safety Report 12348107 (Version 1)
Quarter: 2016Q2

REPORT INFORMATION
  Report Type: Spontaneous
  Country: US (occurrence: US)
  Receive Date: 20160509
  Receipt Date: 20160509
  Transmission Date: 20160815
  Serious: No
  Sender: FDA-Public Use
  Company Number: US-009507513-1604USA015162

PATIENT
  Age: 41 Year
  Sex: Female

DRUGS (2)
  1. NEXPLANON [Suspect]
     Active Substance: ETONOGESTREL
     Dosage: 1 ROD 3 YEARS
     Route: 059
     Dates: start: 20160421
  2. NEXPLANON [Suspect]
     Active Substance: ETONOGESTREL
     Indication: CONTRACEPTION
     Dosage: 2 SEPERATE RODS OF SAME LOT(1 ROD 3 YEARS)
     Route: 059
     Dates: start: 20160421

REACTIONS (3)
  - Device difficult to use [Recovered/Resolved]
  - Product quality issue [Unknown]
  - No adverse event [Unknown]

NARRATIVE: CASE EVENT DATE: 20160421
